FAERS Safety Report 7747457-6 (Version None)
Quarter: 2011Q3

REPORT INFORMATION
  Report Type: 
  Country: None (occurrence: None)
  Receive Date: 20110913
  Receipt Date: 20110602
  Transmission Date: 20111222
  Serious: No
  Sender: FDA-Public Use
  Company Number: US-BAYER-2011-077250

PATIENT
  Age: 49 Year
  Sex: Female

DRUGS (6)
  1. BETASERON [Suspect]
     Indication: MULTIPLE SCLEROSIS
     Dosage: 0.25 MG, QD
     Route: 058
     Dates: start: 20110201
  2. LORAZEPAM [Concomitant]
  3. ALEVE [Concomitant]
  4. VITAMIN D [Concomitant]
  5. PROVIGIL [Concomitant]
  6. VITAMIN B-12 [Concomitant]

REACTIONS (3)
  - INJECTION SITE REACTION [None]
  - INJECTION SITE HAEMATOMA [None]
  - HEADACHE [None]
